FAERS Safety Report 5869349-X (Version None)
Quarter: 2008Q3

REPORT INFORMATION
  Report Type: 
  Country: None (occurrence: None)
  Receive Date: 20080903
  Receipt Date: 20080826
  Transmission Date: 20090109
  Serious: Yes (Hospitalization)
  Sender: FDA-Public Use
  Company Number: US-AMGEN-US304175

PATIENT
  Age: 66 Year
  Sex: Male
  Weight: 81 kg

DRUGS (4)
  1. PANITUMUMAB [Suspect]
     Indication: SQUAMOUS CELL CARCINOMA
     Route: 042
     Dates: start: 20080715
  2. OXALIPLATIN [Concomitant]
     Dates: start: 20080715
  3. CAPECITABINE [Concomitant]
     Dates: start: 20080715
  4. RADIATION THERAPY [Concomitant]

REACTIONS (1)
  - ORTHOSTATIC HYPOTENSION [None]
